FAERS Safety Report 5430328-8 (Version None)
Quarter: 2007Q3

REPORT INFORMATION
  Report Type: 
  Country: None (occurrence: None)
  Receive Date: 20070830
  Receipt Date: 20070824
  Transmission Date: 20080115
  Serious: Yes (Other)
  Sender: FDA-Public Use
  Company Number: PHBS2007JP08026

PATIENT
  Age: 12 Year
  Sex: Male
  Weight: 37 kg

DRUGS (7)
  1. PROPOFOL [Suspect]
     Indication: ANAESTHESIA
  2. FENTANYL [Suspect]
     Indication: ANAESTHESIA
  3. VECURONIUM BROMIDE [Suspect]
     Indication: ANAESTHESIA
     Dosage: 5 MG, UNK
  4. SEVOFLURANE [Suspect]
     Indication: ANAESTHESIA
  5. VOLTAREN [Suspect]
     Indication: PAIN
     Dosage: 25 MG/DAY
     Route: 054
  6. ATROPINE [Suspect]
     Indication: HYPOTONIA
  7. VAGOSTIGMIN [Suspect]
     Indication: HYPOTONIA

REACTIONS (2)
  - GLOBAL AMNESIA [None]
  - VISUAL ACUITY REDUCED [None]
